FAERS Safety Report 21782808 (Version 1)
Quarter: 2022Q4

REPORT INFORMATION
  Report Type: Spontaneous
  Country: US (occurrence: None)
  Receive Date: 20221223
  Receipt Date: 20221223
  Transmission Date: 20230112
  Serious: Yes (Disabling)
  Sender: FDA-Public Use
  Company Number: None

PATIENT
  Age: 55 Year
  Sex: Female
  Weight: 65.25 kg

DRUGS (1)
  1. BUPRENORPHINE\NALOXONE [Suspect]
     Active Substance: BUPRENORPHINE\NALOXONE
     Indication: Drug dependence
     Dosage: OTHER QUANTITY : 28 2;?FREQUENCY : TWICE A DAY;?
     Route: 060
     Dates: start: 20211202, end: 20221223

REACTIONS (4)
  - Nightmare [None]
  - Abnormal dreams [None]
  - Night sweats [None]
  - Insomnia [None]

NARRATIVE: CASE EVENT DATE: 20211204
